FAERS Safety Report 12883691 (Version 2)
Quarter: 2016Q4

REPORT INFORMATION
  Report Type: Spontaneous
  Country: US (occurrence: US)
  Receive Date: 20161025
  Receipt Date: 20161103
  Transmission Date: 20170207
  Serious: Yes (Other)
  Sender: FDA-Public Use
  Company Number: US-ROCHE-1846396

PATIENT
  Age: 41 Year
  Sex: Female

DRUGS (7)
  1. SEROQUEL [Concomitant]
     Active Substance: QUETIAPINE FUMARATE
     Route: 065
  2. MIRAPEX [Concomitant]
     Active Substance: PRAMIPEXOLE DIHYDROCHLORIDE
  3. SINGULAIR [Concomitant]
     Active Substance: MONTELUKAST SODIUM
     Route: 065
  4. XOLAIR [Suspect]
     Active Substance: OMALIZUMAB
     Indication: IDIOPATHIC URTICARIA
     Dosage: MOST RECENT DOSE: 06/APR/2016 (300 MG)
     Route: 058
     Dates: end: 20160919
  5. MIRENA [Concomitant]
     Active Substance: LEVONORGESTREL
  6. KLONOPIN [Concomitant]
     Active Substance: CLONAZEPAM
  7. LEXAPRO [Concomitant]
     Active Substance: ESCITALOPRAM OXALATE

REACTIONS (2)
  - Conjunctival oedema [Unknown]
  - Eye oedema [Unknown]

NARRATIVE: CASE EVENT DATE: 201512
